FAERS Safety Report 7134156-7 (Version None)
Quarter: 2010Q4

REPORT INFORMATION
  Report Type: 
  Country: None (occurrence: None)
  Receive Date: 20101203
  Receipt Date: 20101125
  Transmission Date: 20110411
  Serious: Yes (Other)
  Sender: FDA-Public Use
  Company Number: BR-US-EMD SERONO, INC.-7029779

PATIENT
  Sex: Female

DRUGS (8)
  1. REBIF [Suspect]
     Indication: RELAPSING-REMITTING MULTIPLE SCLEROSIS
     Dates: start: 20090323
  2. TENORETIC 100 [Concomitant]
  3. PHARMATON [Concomitant]
  4. DORFLEX [Concomitant]
  5. TORLOS [Concomitant]
  6. PARACETAMOL [Concomitant]
  7. PRIMOLUT-NOR [Concomitant]
  8. SARIDON [Concomitant]

REACTIONS (4)
  - FEELING ABNORMAL [None]
  - HYPERTENSION [None]
  - UTERINE LEIOMYOMA [None]
  - WEIGHT INCREASED [None]
